FAERS Safety Report 8349938-3 (Version None)
Quarter: 2012Q2

REPORT INFORMATION
  Report Type: 
  Country: None (occurrence: None)
  Receive Date: 20120510
  Receipt Date: 20120428
  Transmission Date: 20120825
  Serious: No
  Sender: FDA-Public Use
  Company Number: US-BAYER-2012-043235

PATIENT

DRUGS (4)
  1. MUCINEX [Concomitant]
  2. NAPROXEN SODIUM [Suspect]
     Indication: SINUS CONGESTION
     Route: 048
  3. ADVIL COLD AND SINUS [Concomitant]
  4. SUDAFED 12 HOUR [Concomitant]

REACTIONS (1)
  - SINUS CONGESTION [None]
